FAERS Safety Report 6782762-1 (Version None)
Quarter: 2010Q2

REPORT INFORMATION
  Report Type: 
  Country: None (occurrence: None)
  Receive Date: 20100621
  Receipt Date: 20100608
  Transmission Date: 20101027
  Serious: Yes (Hospitalization)
  Sender: FDA-Public Use
  Company Number: US-ELI_LILLY_AND_COMPANY-US200910004620

PATIENT
  Sex: Female

DRUGS (7)
  1. FORTEO [Suspect]
     Indication: OSTEOPOROSIS
     Dosage: 20 UG, DAILY (1/D)
     Dates: start: 20090925, end: 20091001
  2. FORTEO [Suspect]
     Dosage: 20 UG, DAILY (1/D)
     Dates: start: 20090101, end: 20091201
  3. FORTEO [Suspect]
     Dosage: 20 UG, DAILY (1/D)
  4. METHOTREXATE [Concomitant]
  5. CYTOTEC [Concomitant]
  6. VITAMIN D [Concomitant]
  7. TYLENOL (CAPLET) [Concomitant]

REACTIONS (3)
  - INTESTINAL OBSTRUCTION [None]
  - NAUSEA [None]
  - PAIN IN EXTREMITY [None]
